FAERS Safety Report 9820622 (Version 1)
Quarter: 2013Q4

REPORT INFORMATION
  Report Type: Spontaneous
  Country: US (occurrence: None)
  Receive Date: 20131028
  Receipt Date: 20131028
  Transmission Date: 20140711
  Serious: Yes (Other)
  Sender: FDA-Public Use
  Company Number: 2013US001678

PATIENT
  Age: 56 Year
  Sex: Female
  Weight: 59 kg

DRUGS (11)
  1. ICLUSIG [Suspect]
     Indication: CHRONIC MYELOID LEUKAEMIA
     Route: 048
     Dates: start: 20130201
  2. CYMBALTA (DULOXETINE HYDROCHLORIDE) [Concomitant]
  3. LOVAZA (OMEGA-3-ACID ETHYL ESTER) [Concomitant]
  4. ZETIA (EZETIMIBE) [Concomitant]
  5. METOPROLOL (METOPROLOL) [Concomitant]
  6. XANAX (ALPRAZOLAM) [Concomitant]
  7. JANUMET (METFORMIN HYDROCHLORIDE, SITAGLIPTIN PHOSPHATE MONOHYDRATE) [Concomitant]
  8. LEVEMIR (INSULIN DETEMIR) [Concomitant]
  9. INSULIN (INSULIN) [Concomitant]
  10. QUINAPRIL (QUINAPRIL) [Concomitant]
  11. ULTRAM (TRAMADOL HYDROCHLORIDE) [Concomitant]

REACTIONS (3)
  - Skin exfoliation [None]
  - Rash [None]
  - Decreased appetite [None]
